FAERS Safety Report 7770280-3 (Version None)
Quarter: 2011Q3

REPORT INFORMATION
  Report Type: 
  Country: None (occurrence: None)
  Receive Date: 20110922
  Receipt Date: 20100804
  Transmission Date: 20111222
  Serious: No
  Sender: FDA-Public Use
  Company Number: US-ASTRAZENECA-2010SE36514

PATIENT
  Age: 61 Year
  Sex: Female

DRUGS (7)
  1. SEROQUEL XR [Suspect]
     Indication: DEPRESSION
     Route: 048
  2. XANAX [Concomitant]
     Dates: end: 19900101
  3. TRAZODONE HCL [Concomitant]
  4. RESTORIL [Concomitant]
  5. PAXIL [Concomitant]
  6. SEROQUEL XR [Suspect]
     Indication: ANXIETY
     Route: 048
  7. CELEXA [Concomitant]

REACTIONS (4)
  - FACE INJURY [None]
  - FALL [None]
  - DRUG DOSE OMISSION [None]
  - DIZZINESS [None]
